FAERS Safety Report 9736450 (Version 1)
Quarter: 2013Q4

REPORT INFORMATION
  Report Type: Spontaneous
  Country: US (occurrence: US)
  Receive Date: 20131206
  Receipt Date: 20131206
  Transmission Date: 20140711
  Serious: No
  Sender: FDA-Public Use
  Company Number: US-GLAXOSMITHKLINE-A1034278A

PATIENT
  Age: 65 Year
  Sex: Female

DRUGS (5)
  1. ATENOLOL [Suspect]
     Indication: PRODUCT USED FOR UNKNOWN INDICATION
     Route: 048
     Dates: start: 1995, end: 20070226
  2. RYTHMOL [Suspect]
     Indication: PRODUCT USED FOR UNKNOWN INDICATION
     Route: 065
  3. TAMBOCOR [Suspect]
     Indication: PRODUCT USED FOR UNKNOWN INDICATION
     Route: 065
  4. SOTALOL [Suspect]
     Indication: HEART RATE IRREGULAR
     Dosage: 80MG PER DAY
     Route: 065
     Dates: start: 20070226
  5. SYNTHROID [Concomitant]

REACTIONS (8)
  - Hypoaesthesia [Unknown]
  - Vision blurred [Recovered/Resolved]
  - Metamorphopsia [Recovered/Resolved]
  - Headache [Recovered/Resolved]
  - Hypotension [Unknown]
  - Cough [Unknown]
  - Increased upper airway secretion [Unknown]
  - Lung disorder [Unknown]
